FAERS Safety Report 23696210 (Version 1)
Quarter: 2024Q2

REPORT INFORMATION
  Report Type: Spontaneous
  Country: NL (occurrence: NL)
  Receive Date: 20240402
  Receipt Date: 20240402
  Transmission Date: 20240716
  Serious: Yes (Death, Other)
  Sender: FDA-Public Use
  Company Number: NL-ASTELLAS-2024US009653

PATIENT
  Sex: Male

DRUGS (1)
  1. PADCEV [Suspect]
     Active Substance: ENFORTUMAB VEDOTIN-EJFV
     Indication: Product used for unknown indication
     Dosage: {1.25 MG/KG, UNKNOWN FREQ.
     Route: 065

REACTIONS (5)
  - Asthenia [Fatal]
  - Dermatitis bullous [Unknown]
  - Skin toxicity [Unknown]
  - Underdose [Unknown]
  - Off label use [Unknown]
